FAERS Safety Report 11109694 (Version 1)
Quarter: 2015Q2

REPORT INFORMATION
  Report Type: Spontaneous
  Country: IT (occurrence: IT)
  Receive Date: 20150513
  Receipt Date: 20150513
  Transmission Date: 20150821
  Serious: Yes (Other)
  Sender: FDA-Public Use
  Company Number: IT-WATSON-2015-09525

PATIENT
  Age: 64 Year
  Sex: Male

DRUGS (2)
  1. CYCLOSPORINE (UNKNOWN) [Suspect]
     Active Substance: CYCLOSPORINE
     Dosage: 0.3 MG/KG, DAILY
     Route: 065
  2. CYCLOSPORINE (UNKNOWN) [Suspect]
     Active Substance: CYCLOSPORINE
     Indication: LICHEN PLANUS
     Dosage: 5 MG/KG, DAILY
     Route: 065

REACTIONS (1)
  - Keratoacanthoma [Recovered/Resolved]
